FAERS Safety Report 9104221 (Version 1)
Quarter: 2013Q1

REPORT INFORMATION
  Report Type: Spontaneous
  Country: BR (occurrence: BR)
  Receive Date: 20130219
  Receipt Date: 20130219
  Transmission Date: 20140127
  Serious: Yes (Other)
  Sender: FDA-Public Use
  Company Number: PHHY2013BR015058

PATIENT
  Age: 47 Year
  Sex: Female

DRUGS (2)
  1. CATAFLAM [Suspect]
     Indication: OROPHARYNGEAL PAIN
     Dosage: 1 SUGAR COATED TABLET EVERY 8 HOURS
     Route: 048
  2. CATAFLAM [Suspect]
     Indication: MYALGIA

REACTIONS (2)
  - Haemorrhoids [Unknown]
  - Haemorrhoid infection [Unknown]
